FAERS Safety Report 24717820 (Version 1)
Quarter: 2024Q4

REPORT INFORMATION
  Report Type: Spontaneous
  Country: RU (occurrence: RU)
  Receive Date: 20241210
  Receipt Date: 20241210
  Transmission Date: 20250114
  Serious: Yes (Life-Threatening, Other)
  Sender: SANOFI AVENTIS
  Company Number: RU-SA-2024SA361534

PATIENT
  Age: 19 Year
  Sex: Female
  Weight: 60 kg

DRUGS (1)
  1. APIDRA [Suspect]
     Active Substance: INSULIN GLULISINE
     Indication: Type 1 diabetes mellitus
     Dosage: 8 UNITS SUBCUTANEOUSLY BEFORE BREAKFAST, LUNCH AND DINNER. DUE TO THE HIGH LEVEL OF GLYCEMIA, INJECT
     Route: 058
     Dates: start: 20240819, end: 20240919

REACTIONS (3)
  - Ketoacidosis [Recovered/Resolved]
  - Hypoglycaemia [Unknown]
  - Blood glucose increased [Unknown]

NARRATIVE: CASE EVENT DATE: 20240101
